FAERS Safety Report 4664465-2 (Version None)
Quarter: 2005Q2

REPORT INFORMATION
  Report Type: 
  Country: None (occurrence: None)
  Receive Date: 20050518
  Receipt Date: 20050509
  Transmission Date: 20051028
  Serious: Yes (Death)
  Sender: FDA-Public Use
  Company Number: HR-NOVOPROD-244076

PATIENT
  Age: 55 Year
  Sex: Male
  Weight: 85 kg

DRUGS (1)
  1. NOVOSEVEN [Suspect]
     Indication: INJURY
     Dosage: 3.6 MG, QD
     Route: 042
     Dates: start: 20040630, end: 20040630

REACTIONS (1)
  - CONCOMITANT DISEASE PROGRESSION [None]
